FAERS Safety Report 5606034-3 (Version None)
Quarter: 2008Q1

REPORT INFORMATION
  Report Type: 
  Country: None (occurrence: None)
  Receive Date: 20080123
  Receipt Date: 20080114
  Transmission Date: 20080703
  Serious: Yes (Hospitalization)
  Sender: FDA-Public Use
  Company Number: CAP08000012

PATIENT
  Sex: Male

DRUGS (10)
  1. ASACOL [Suspect]
     Dosage: 1200 MG 3 TIMES DAILY; ORAL
     Route: 048
     Dates: start: 20071101
  2. ASACOL [Suspect]
     Dosage: 800 MG 3 TIMES DAILY; 400 MG 3 TIMES DAILY; ORAL
     Route: 048
     Dates: end: 20071101
  3. ASACOL [Suspect]
     Dosage: 800 MG 3 TIMES DAILY; 400 MG 3 TIMES DAILY; ORAL
     Route: 048
     Dates: end: 20071101
  4. LORAZEPAM [Concomitant]
  5. DILAUDID [Concomitant]
  6. HYDROMORPHONE HYDROCHLORIDE [Concomitant]
  7. CORTISONE ACETATE [Concomitant]
  8. FOSAMAX [Concomitant]
  9. VITAMIN D [Concomitant]
  10. CALCIUM (CALCIUM) [Concomitant]

REACTIONS (2)
  - LARGE INTESTINAL ULCER [None]
  - MEDICATION RESIDUE [None]
